FAERS Safety Report 20827419 (Version 2)
Quarter: 2022Q2

REPORT INFORMATION
  Report Type: Spontaneous
  Country: US (occurrence: US)
  Receive Date: 20220513
  Receipt Date: 20220622
  Transmission Date: 20220721
  Serious: No
  Sender: FDA-Public Use
  Company Number: US-BRISTOL-MYERS SQUIBB COMPANY-2022-033570

PATIENT
  Age: 85 Year
  Sex: Female

DRUGS (2)
  1. POMALYST [Suspect]
     Active Substance: POMALIDOMIDE
     Indication: Plasma cell myeloma
     Dosage: 2MG DAILY FOR 21 DAYS
     Route: 048
     Dates: start: 202201
  2. POMALYST [Suspect]
     Active Substance: POMALIDOMIDE
     Indication: Product used for unknown indication
     Dosage: FREQUENCY: OTHER
     Route: 048
     Dates: start: 20220405

REACTIONS (3)
  - Gait disturbance [Unknown]
  - Product distribution issue [Unknown]
  - Peripheral swelling [Unknown]

NARRATIVE: CASE EVENT DATE: 20220405
